FAERS Safety Report 7474903-8 (Version None)
Quarter: 2011Q2

REPORT INFORMATION
  Report Type: 
  Country: None (occurrence: None)
  Receive Date: 20110509
  Receipt Date: 20110509
  Transmission Date: 20111010
  Serious: No
  Sender: FDA-Public Use
  Company Number: None

PATIENT
  Age: 70 Year
  Sex: Female
  Weight: 63.5036 kg

DRUGS (2)
  1. LEVAQUIN [Suspect]
     Indication: PNEUMONIA
     Dosage: 250MG QD IV DRIP
     Route: 041
     Dates: start: 20101123, end: 20101128
  2. LEVAQUIN [Suspect]
     Dosage: 500MG QD PO
     Route: 048
     Dates: start: 20101130, end: 20101206

REACTIONS (2)
  - MEDICAL DEVICE COMPLICATION [None]
  - PAIN IN EXTREMITY [None]
